FAERS Safety Report 5507574-8 (Version None)
Quarter: 2007Q4

REPORT INFORMATION
  Report Type: 
  Country: None (occurrence: None)
  Receive Date: 20071102
  Receipt Date: 20071024
  Transmission Date: 20080405
  Serious: Yes (Hospitalization)
  Sender: FDA-Public Use
  Company Number: 028-C5013-07061280

PATIENT
  Age: 69 Year
  Sex: Male
  Weight: 86 kg

DRUGS (6)
  1. CC-5013 (LENALIDOMIDE) (CAPSULES) [Suspect]
     Indication: MULTIPLE MYELOMA
     Dosage: 10 MG, QD X21 DAYS, ORAL
     Route: 048
     Dates: start: 20031127
  2. DEXAMETHASONE TAB [Suspect]
     Indication: MULTIPLE MYELOMA
     Dosage: ORAL
     Route: 048
     Dates: start: 20031127, end: 20061112
  3. LOVENOX [Concomitant]
  4. FOSAMAX [Concomitant]
  5. HEPARIN [Concomitant]
  6. FLUTAMIDE [Concomitant]

REACTIONS (25)
  - ACETABULUM FRACTURE [None]
  - BLOOD ALKALINE PHOSPHATASE INCREASED [None]
  - BLOOD CALCIUM DECREASED [None]
  - BLOOD MAGNESIUM DECREASED [None]
  - CEREBRAL ISCHAEMIA [None]
  - DELIRIUM [None]
  - DERMAL CYST [None]
  - FALL [None]
  - HAEMATOCRIT DECREASED [None]
  - HAEMOGLOBIN DECREASED [None]
  - INTERSTITIAL LUNG DISEASE [None]
  - LYMPHOCYTE COUNT DECREASED [None]
  - MEAN CELL VOLUME INCREASED [None]
  - MUCOUS MEMBRANE DISORDER [None]
  - MYOCLONUS [None]
  - NARCOTIC INTOXICATION [None]
  - NEUTROPHIL COUNT DECREASED [None]
  - NEUTROPHIL COUNT INCREASED [None]
  - PLATELET COUNT DECREASED [None]
  - PLEURAL RUB [None]
  - RED BLOOD CELL COUNT DECREASED [None]
  - RIB FRACTURE [None]
  - SYNCOPE VASOVAGAL [None]
  - WHITE BLOOD CELL COUNT DECREASED [None]
  - WHITE BLOOD CELL COUNT INCREASED [None]
